FAERS Safety Report 17637970 (Version 1)
Quarter: 2020Q2

REPORT INFORMATION
  Report Type: Spontaneous
  Country: GB (occurrence: GB)
  Receive Date: 20200407
  Receipt Date: 20200407
  Transmission Date: 20200713
  Serious: Yes (Other)
  Sender: FDA-Public Use
  Company Number: GB-PFIZER INC-2020140237

PATIENT
  Age: 27 Year
  Sex: Female

DRUGS (4)
  1. CETIRIZINE [Concomitant]
     Active Substance: CETIRIZINE HYDROCHLORIDE
     Dosage: UNK
  2. BOOTS COLD + FLU RELIEF [Concomitant]
     Dosage: UNK
  3. PARACETAMOL [Concomitant]
     Active Substance: ACETAMINOPHEN
     Dosage: UNK
  4. SERTRALINE HCL [Suspect]
     Active Substance: SERTRALINE HYDROCHLORIDE
     Indication: ANXIETY
     Dosage: 50 MG, UNK
     Route: 048
     Dates: start: 20200117, end: 20200226

REACTIONS (11)
  - Muscle fatigue [Recovering/Resolving]
  - Anxiety [Not Recovered/Not Resolved]
  - Insomnia [Recovered/Resolved]
  - Toothache [Recovering/Resolving]
  - Palpitations [Recovered/Resolved with Sequelae]
  - Myalgia [Recovering/Resolving]
  - Drug withdrawal syndrome [Recovering/Resolving]
  - Pain in jaw [Unknown]
  - Chest discomfort [Recovering/Resolving]
  - Chest pain [Unknown]
  - Heart rate increased [Not Recovered/Not Resolved]

NARRATIVE: CASE EVENT DATE: 20200118
